FAERS Safety Report 22661559 (Version 1)
Quarter: 2023Q2

REPORT INFORMATION
  Report Type: Report from Study
  Country: SG (occurrence: SG)
  Receive Date: 20230630
  Receipt Date: 20230630
  Transmission Date: 20230722
  Serious: Yes (Other)
  Sender: FDA-Public Use
  Company Number: SG-JAZZ PHARMACEUTICALS-2018-SG-019361

PATIENT
  Sex: Female

DRUGS (7)
  1. EPIDIOLEX [Suspect]
     Active Substance: CANNABIDIOL
     Indication: Febrile status epilepticus
     Dosage: 300 MILLIGRAM, BID
  2. EPIDIOLEX [Suspect]
     Active Substance: CANNABIDIOL
     Dosage: 5 MILLILITER
  3. MIDAZOLAM [Concomitant]
     Active Substance: MIDAZOLAM
     Dosage: UNK
  4. KETAMINE [Concomitant]
     Active Substance: KETAMINE
     Dosage: UNK
  5. KEPPRA [Concomitant]
     Active Substance: LEVETIRACETAM
     Dosage: UNK
  6. CLOBAZAM [Concomitant]
     Active Substance: CLOBAZAM
     Dosage: UNK
  7. PERAMPANEL [Concomitant]
     Active Substance: PERAMPANEL
     Dosage: UNK

REACTIONS (2)
  - Seizure [Unknown]
  - Off label use [Unknown]
